FAERS Safety Report 22135702 (Version 1)
Quarter: 2023Q1

REPORT INFORMATION
  Report Type: Spontaneous
  Country: US (occurrence: US)
  Receive Date: 20230324
  Receipt Date: 20230324
  Transmission Date: 20230418
  Serious: No
  Sender: FDA-Public Use
  Company Number: US-SANOFI-01541381

PATIENT
  Sex: Male

DRUGS (10)
  1. DUPIXENT [Suspect]
     Active Substance: DUPILUMAB
     Indication: Nasal polyps
     Dosage: 300 MG QOW
     Dates: start: 202106, end: 2022
  2. HYDROCHLOROTHIAZIDE [Concomitant]
     Active Substance: HYDROCHLOROTHIAZIDE
  3. ASPIRIN [Concomitant]
     Active Substance: ASPIRIN
  4. REMERON [Concomitant]
     Active Substance: MIRTAZAPINE
  5. LEXAPRO [Concomitant]
     Active Substance: ESCITALOPRAM OXALATE
  6. TRULICITY [Concomitant]
     Active Substance: DULAGLUTIDE
  7. NADOLOL [Concomitant]
     Active Substance: NADOLOL
  8. OMEPRAZOLE [Concomitant]
     Active Substance: OMEPRAZOLE
  9. LOVASTATIN [Concomitant]
     Active Substance: LOVASTATIN
  10. ALPRAZOLAM [Concomitant]
     Active Substance: ALPRAZOLAM

REACTIONS (5)
  - Eye pain [Not Recovered/Not Resolved]
  - Nasal congestion [Not Recovered/Not Resolved]
  - Facial discomfort [Not Recovered/Not Resolved]
  - Headache [Not Recovered/Not Resolved]
  - Ocular discomfort [Not Recovered/Not Resolved]

NARRATIVE: CASE EVENT DATE: 20220101
